FAERS Safety Report 6325303-5 (Version None)
Quarter: 2009Q3

REPORT INFORMATION
  Report Type: 
  Country: None (occurrence: None)
  Receive Date: 20090824
  Receipt Date: 20090713
  Transmission Date: 20100115
  Serious: No
  Sender: FDA-Public Use
  Company Number: US-ABBOTT-09P-163-0585706-00

PATIENT
  Sex: Male
  Weight: 62.652 kg

DRUGS (8)
  1. NIASPAN [Suspect]
     Indication: BLOOD CHOLESTEROL INCREASED
     Route: 048
     Dates: start: 20080101
  2. LIPITOR [Concomitant]
     Indication: BLOOD CHOLESTEROL INCREASED
     Route: 048
  3. FISH OIL [Concomitant]
     Indication: BLOOD CHOLESTEROL INCREASED
  4. ATENOLOL [Concomitant]
     Indication: HYPERTENSION
     Route: 048
  5. ALEVE [Concomitant]
     Indication: PAIN
     Dosage: Q AM + PRN
  6. ALEVE [Concomitant]
     Indication: PROPHYLAXIS
  7. ALEVE [Concomitant]
  8. ASPIRIN [Concomitant]
     Indication: PROPHYLAXIS
     Dosage: QHS
     Route: 048

REACTIONS (2)
  - JOINT SWELLING [None]
  - OEDEMA PERIPHERAL [None]
